FAERS Safety Report 10691239 (Version 2)
Quarter: 2017Q3

REPORT INFORMATION
  Report Type: Spontaneous
  Country: IN (occurrence: IN)
  Receive Date: 20150105
  Receipt Date: 20170830
  Transmission Date: 20171127
  Serious: Yes (Other)
  Sender: FDA-Public Use
  Company Number: IN-MYLANLABS-2014M1015817

PATIENT
  Age: 55 Year
  Sex: Male

DRUGS (1)
  1. SODIUM TETRADECYL SULFATE [Suspect]
     Active Substance: SODIUM TETRADECYL SULFATE
     Indication: VASCULAR MALFORMATION
     Dosage: 30 MG/ML; 1ML OF 3%
     Route: 026

REACTIONS (2)
  - Injection site ulcer [Recovering/Resolving]
  - Inflammation [Recovering/Resolving]
